FAERS Safety Report 9297778 (Version 2)
Quarter: 2014Q2

REPORT INFORMATION
  Report Type: Spontaneous
  Country: DK (occurrence: DK)
  Receive Date: 20130520
  Receipt Date: 20140523
  Transmission Date: 20141212
  Serious: Yes (Other)
  Sender: FDA-Public Use
  Company Number: PHHY2013DK049335

PATIENT
  Age: 70 Year
  Sex: Male

DRUGS (2)
  1. ZOMETA [Suspect]
     Indication: METASTASES TO BONE
     Dosage: 4 MG (PER 100 ML)
     Route: 042
     Dates: start: 2009, end: 201211
  2. MORFIN ^DAK^ [Concomitant]
     Indication: PRODUCT USED FOR UNKNOWN INDICATION
     Dosage: UNK UKN, UNK

REACTIONS (1)
  - Osteonecrosis of jaw [Not Recovered/Not Resolved]
